FAERS Safety Report 19224365 (Version 1)
Quarter: 2021Q2

REPORT INFORMATION
  Report Type: Spontaneous
  Country: US (occurrence: US)
  Receive Date: 20210505
  Receipt Date: 20210505
  Transmission Date: 20210717
  Serious: No
  Sender: FDA-Public Use
  Company Number: US-ROCHE-2670870

PATIENT
  Sex: Male

DRUGS (2)
  1. ESBRIET [Suspect]
     Active Substance: PIRFENIDONE
     Indication: OSTEOARTHRITIS
     Dosage: 1 TABLETS 3 TIMES DAILY FOR 1 WEEK, THEN 2 TABLETS 3 TIMES DAILY FOR 1 WEEK THEN 3 TABLETS 3 TIMES D
     Route: 048
  2. ESBRIET [Suspect]
     Active Substance: PIRFENIDONE
     Dosage: TAKE 1 TABLET BY MOUTH 3 TIMES A DAY
     Route: 048
     Dates: start: 202008

REACTIONS (7)
  - Nausea [Recovered/Resolved]
  - Product use in unapproved indication [Unknown]
  - Nausea [Unknown]
  - Off label use [Unknown]
  - Gastric disorder [Unknown]
  - Dizziness [Recovered/Resolved]
  - Developmental coordination disorder [Recovered/Resolved]
